FAERS Safety Report 25531320 (Version 1)
Quarter: 2025Q3

REPORT INFORMATION
  Report Type: Other
  Country: US (occurrence: US)
  Receive Date: 20250708
  Receipt Date: 20250708
  Transmission Date: 20251020
  Serious: Yes (Hospitalization)
  Sender: MISSION PHARMACAL COMPANY
  Company Number: US-Mission Pharmacal Company-2180148

PATIENT
  Age: 46 Year
  Sex: Female

DRUGS (11)
  1. THIOLA EC [Suspect]
     Active Substance: TIOPRONIN
     Indication: Cystinuria
     Dates: start: 20210304
  2. FLOMAX [Concomitant]
     Active Substance: TAMSULOSIN HYDROCHLORIDE
  3. VIMPAT [Concomitant]
     Active Substance: LACOSAMIDE
  4. TIZANIDINE [Concomitant]
     Active Substance: TIZANIDINE
  5. PYRIDIUM [Concomitant]
     Active Substance: PHENAZOPYRIDINE
  6. PROMETHAZINE [Concomitant]
     Active Substance: PROMETHAZINE HYDROCHLORIDE
  7. OXYCODONE [Concomitant]
     Active Substance: OXYCODONE
  8. OXYBUTYNIN CHLORIDE [Concomitant]
     Active Substance: OXYBUTYNIN CHLORIDE
  9. NYSTATIN [Concomitant]
     Active Substance: NYSTATIN
  10. LEXAPRO [Concomitant]
     Active Substance: ESCITALOPRAM OXALATE
  11. KEPPRA [Concomitant]
     Active Substance: LEVETIRACETAM

REACTIONS (3)
  - Chronic kidney disease [Unknown]
  - Ureteric obstruction [Unknown]
  - Renal impairment [Unknown]
